FAERS Safety Report 8489259-1 (Version None)
Quarter: 2012Q2

REPORT INFORMATION
  Report Type: 
  Country: None (occurrence: None)
  Receive Date: 20120628
  Receipt Date: 20120628
  Transmission Date: 20120825
  Serious: No
  Sender: FDA-Public Use
  Company Number: None

PATIENT
  Sex: Male
  Weight: 99.5 kg

DRUGS (3)
  1. PEG-L-ASPARAGINASE (K-H) [Suspect]
     Dosage: 5600 UNIT
  2. VINCRISTINE SULFATE [Suspect]
     Dosage: 4 MG
  3. METHOTREXATE [Suspect]
     Dosage: 570 MG

REACTIONS (5)
  - BLOOD TRIGLYCERIDES INCREASED [None]
  - VOMITING [None]
  - NAUSEA [None]
  - FATIGUE [None]
  - ASTHENIA [None]
